FAERS Safety Report 8037841-8 (Version None)
Quarter: 2012Q1

REPORT INFORMATION
  Report Type: 
  Country: None (occurrence: None)
  Receive Date: 20120111
  Receipt Date: 20120102
  Transmission Date: 20120608
  Serious: Yes (Hospitalization, Disabling, Other)
  Sender: FDA-Public Use
  Company Number: PHHY2012DE000536

PATIENT
  Sex: Male
  Weight: 91 kg

DRUGS (1)
  1. TASIGNA [Suspect]
     Indication: CHRONIC MYELOID LEUKAEMIA
     Dosage: 600 MG, DAILY
     Route: 048
     Dates: start: 20110101, end: 20111228

REACTIONS (19)
  - ARTERIOSCLEROSIS [None]
  - NERVE ROOT LESION [None]
  - PAIN IN EXTREMITY [None]
  - CEREBRAL ISCHAEMIA [None]
  - PERIPHERAL ARTERIAL OCCLUSIVE DISEASE [None]
  - TOXIC NEUROPATHY [None]
  - VERTIGO [None]
  - HAEMATURIA [None]
  - INTERMITTENT CLAUDICATION [None]
  - GANGRENE [None]
  - IMPAIRED HEALING [None]
  - ANAEMIA POSTOPERATIVE [None]
  - NECROSIS [None]
  - SKIN ULCER [None]
  - FEMORAL ARTERIAL STENOSIS [None]
  - CELLULITIS [None]
  - HEMIPARESIS [None]
  - AMNESTIC DISORDER [None]
  - DYSPNOEA [None]
